FAERS Safety Report 6116167-3 (Version None)
Quarter: 2009Q1

REPORT INFORMATION
  Report Type: 
  Country: None (occurrence: None)
  Receive Date: 20090314
  Receipt Date: 20081202
  Transmission Date: 20090719
  Serious: No
  Sender: FDA-Public Use
  Company Number: US-ABBOTT-08P-163-0490633-00

PATIENT
  Sex: Female
  Weight: 105.33 kg

DRUGS (4)
  1. HUMIRA [Suspect]
     Indication: CROHN'S DISEASE
     Route: 058
     Dates: start: 20080917
  2. LASIX [Suspect]
     Indication: DIURETIC THERAPY
     Route: 048
     Dates: start: 20081101, end: 20081101
  3. PREDNISONE [Suspect]
     Indication: CROHN'S DISEASE
  4. TOPROL-XL [Concomitant]
     Indication: HYPERTENSION
     Route: 048
     Dates: start: 20060101

REACTIONS (7)
  - ABDOMINAL DISTENSION [None]
  - FLUID RETENTION [None]
  - HEART RATE INCREASED [None]
  - HYPOAESTHESIA [None]
  - INTENTIONAL DRUG MISUSE [None]
  - OEDEMA PERIPHERAL [None]
  - WEIGHT INCREASED [None]
